FAERS Safety Report 4463878-1 (Version None)
Quarter: 2004Q3

REPORT INFORMATION
  Report Type: 
  Country: None (occurrence: None)
  Receive Date: 20040929
  Receipt Date: 20030326
  Transmission Date: 20050211
  Serious: Yes (Death, Hospitalization)
  Sender: FDA-Public Use
  Company Number: 2003009321

PATIENT
  Age: 72 Year
  Sex: Female
  Weight: 82 kg

DRUGS (8)
  1. NORVASC [Suspect]
     Indication: CORONARY ARTERY DISEASE
     Dosage: 5 MG ( 5 MG, 1 IN 1 D), ORAL
     Route: 048
     Dates: start: 20021104
  2. ATENOLOL [Concomitant]
  3. CHLORTALIDONE (CHLORTALIDONE (CHLORTALIDONE) [Concomitant]
  4. ISOSRBIDE MONONITRATE (ISOSORBIDE MONONITRATE) [Concomitant]
  5. IBUPROFEN [Concomitant]
  6. RANITIDINE [Concomitant]
  7. PIROXICAM [Concomitant]
  8. AMLODIPINE BESYLATE [Concomitant]

REACTIONS (2)
  - BLOOD PRESSURE INCREASED [None]
  - MYOCARDIAL INFARCTION [None]
